FAERS Safety Report 7419225-6 (Version None)
Quarter: 2011Q2

REPORT INFORMATION
  Report Type: 
  Country: None (occurrence: None)
  Receive Date: 20110415
  Receipt Date: 20110407
  Transmission Date: 20111010
  Serious: Yes (Hospitalization)
  Sender: FDA-Public Use
  Company Number: US-WATSON-2011-04957

PATIENT
  Age: 58 Year
  Sex: Male
  Weight: 78.458 kg

DRUGS (4)
  1. FENTANYL-100 [Suspect]
     Indication: PAIN
     Dosage: 1 PATCH EVERY 2 DAYS
     Route: 062
  2. FENTANYL-100 [Suspect]
     Dosage: UNK
     Route: 062
  3. FENTANYL-75 [Suspect]
     Dosage: UNK
     Route: 062
  4. FENTANYL-75 [Suspect]
     Indication: PANCREATITIS ACUTE
     Dosage: 1 PATCH EVERY 2 DAYS
     Route: 062
     Dates: start: 20101201

REACTIONS (2)
  - HEART RATE DECREASED [None]
  - PANCREATITIS ACUTE [None]
